FAERS Safety Report 5473519-2 (Version None)
Quarter: 2007Q4

REPORT INFORMATION
  Report Type: 
  Country: None (occurrence: None)
  Receive Date: 20071001
  Receipt Date: 20040223
  Transmission Date: 20080405
  Serious: Yes (Hospitalization, Other)
  Sender: FDA-Public Use
  Company Number: US-PFIZER INC-2002105646US

PATIENT
  Sex: Female
  Weight: 66 kg

DRUGS (6)
  1. DEPO-MEDROL [Suspect]
     Indication: LUMBAR HERNIA
     Route: 008
     Dates: start: 20020114, end: 20020114
  2. FENTANYL [Suspect]
     Indication: LUMBAR HERNIA
     Route: 008
     Dates: start: 20020114, end: 20020114
  3. LIDOCAINE [Suspect]
     Indication: LUMBAR HERNIA
     Route: 008
     Dates: start: 20020114, end: 20020114
  4. ISOVUE-128 [Suspect]
     Indication: LUMBAR HERNIA
     Dates: start: 20020128, end: 20020128
  5. BUPIVACAINE [Suspect]
     Indication: LUMBAR HERNIA
     Route: 035
     Dates: start: 20020128, end: 20020128
  6. SODIUM CHLORIDE [Suspect]
     Indication: LUMBAR HERNIA
     Route: 008
     Dates: start: 20020128, end: 20020128

REACTIONS (22)
  - AMNESIA [None]
  - ARACHNOID CYST [None]
  - AREFLEXIA [None]
  - BACK PAIN [None]
  - DYSARTHRIA [None]
  - DYSPNOEA [None]
  - GAIT DISTURBANCE [None]
  - HYPOAESTHESIA [None]
  - MUSCLE SPASMS [None]
  - MUSCLE TWITCHING [None]
  - MYOCLONUS [None]
  - NEUROPATHY PERIPHERAL [None]
  - PAIN [None]
  - PARAESTHESIA [None]
  - PHOTOPHOBIA [None]
  - PSYCHOSOMATIC DISEASE [None]
  - SENSORY DISTURBANCE [None]
  - SPEECH DISORDER [None]
  - THROAT TIGHTNESS [None]
  - TREMOR [None]
  - URINARY INCONTINENCE [None]
  - VISUAL ACUITY REDUCED [None]
